FAERS Safety Report 6628025-6 (Version None)
Quarter: 2010Q1

REPORT INFORMATION
  Report Type: 
  Country: None (occurrence: None)
  Receive Date: 20100311
  Receipt Date: 20090624
  Transmission Date: 20100710
  Serious: No
  Sender: FDA-Public Use
  Company Number: A0793492A

PATIENT
  Age: 55 Year
  Sex: Female

DRUGS (1)
  1. NICORETTE (MINT) [Suspect]

REACTIONS (5)
  - ABDOMINAL PAIN UPPER [None]
  - FEELING DRUNK [None]
  - HEADACHE [None]
  - MALAISE [None]
  - NAUSEA [None]
